FAERS Safety Report 19050729 (Version 1)
Quarter: 2021Q1

REPORT INFORMATION
  Report Type: Spontaneous
  Country: US (occurrence: US)
  Receive Date: 20210323
  Receipt Date: 20210323
  Transmission Date: 20210420
  Serious: No
  Sender: FDA-Public Use
  Company Number: US-ASTRAZENECA-2021A114675

PATIENT
  Sex: Male

DRUGS (3)
  1. SYMBICORT [Suspect]
     Active Substance: BUDESONIDE\FORMOTEROL FUMARATE DIHYDRATE
     Indication: CHRONIC OBSTRUCTIVE PULMONARY DISEASE
     Dosage: 160/4.5 2 PUFFS, TWO TIMES A DAY
     Route: 055
  2. BREZTRI [Suspect]
     Active Substance: BUDESONIDE\FORMOTEROL\GLYCOPYRRONIUM
     Indication: CHRONIC OBSTRUCTIVE PULMONARY DISEASE
     Dosage: 2 PUFFS, TWO TIMES A DAY
     Route: 055
  3. VENTOLIN [Concomitant]
     Active Substance: ALBUTEROL SULFATE
     Dosage: AS REQUIRED

REACTIONS (4)
  - Productive cough [Unknown]
  - Wrong technique in product usage process [Unknown]
  - Respiratory tract congestion [Unknown]
  - Device delivery system issue [Unknown]
